FAERS Safety Report 12475732 (Version 2)
Quarter: 2016Q3

REPORT INFORMATION
  Report Type: Spontaneous
  Country: JP (occurrence: JP)
  Receive Date: 20160617
  Receipt Date: 20160704
  Transmission Date: 20161109
  Serious: Yes (Other)
  Sender: FDA-Public Use
  Company Number: JP-009507513-1606JPN004428

PATIENT

DRUGS (4)
  1. ABILIFY [Suspect]
     Active Substance: ARIPIPRAZOLE
     Indication: SUICIDE ATTEMPT
     Dosage: 138 MG, QD
     Route: 048
     Dates: start: 20160607, end: 20160607
  2. QUAZEPAM. [Concomitant]
     Active Substance: QUAZEPAM
     Indication: SUICIDE ATTEMPT
     Dosage: 100 MG, QD
     Route: 048
     Dates: start: 20160607, end: 20160607
  3. FLUNITRAZEPAM [Concomitant]
     Active Substance: FLUNITRAZEPAM
     Indication: SUICIDE ATTEMPT
     Dosage: 13 MG, QD
     Route: 048
     Dates: start: 20160607, end: 20160607
  4. BELSOMRA [Suspect]
     Active Substance: SUVOREXANT
     Indication: SUICIDE ATTEMPT
     Dosage: 80 MG, QD
     Route: 048
     Dates: start: 20160607, end: 20160607

REACTIONS (2)
  - Suicide attempt [Recovered/Resolved]
  - Intentional overdose [Unknown]

NARRATIVE: CASE EVENT DATE: 20160607
